FAERS Safety Report 15426814 (Version 1)
Quarter: 2018Q3

REPORT INFORMATION
  Report Type: Spontaneous
  Country: US (occurrence: US)
  Receive Date: 20180925
  Receipt Date: 20180925
  Transmission Date: 20181010
  Serious: No
  Sender: FDA-Public Use
  Company Number: US-INDIVIOR LIMITED-INDV-107383-2018

PATIENT
  Sex: Male

DRUGS (2)
  1. SUBOXONE [Suspect]
     Active Substance: BUPRENORPHINE HYDROCHLORIDE\NALOXONE HYDROCHLORIDE
     Indication: DRUG DEPENDENCE
     Dosage: UNK
     Route: 065
  2. ANALGESICS [Suspect]
     Active Substance: UNSPECIFIED INGREDIENT
     Indication: SPORTS INJURY
     Dosage: UNK
     Route: 065

REACTIONS (6)
  - Loss of personal independence in daily activities [Unknown]
  - Feeling abnormal [Unknown]
  - Drug withdrawal syndrome [Not Recovered/Not Resolved]
  - Asthenia [Unknown]
  - Therapy cessation [Recovered/Resolved]
  - Substance abuse [Recovered/Resolved]
